FAERS Safety Report 15620189 (Version 1)
Quarter: 2018Q4

REPORT INFORMATION
  Report Type: Spontaneous
  Country: US (occurrence: US)
  Receive Date: 20181115
  Receipt Date: 20181115
  Transmission Date: 20190205
  Serious: No
  Sender: FDA-Public Use
  Company Number: US-BAUSCH-BL-2017-028264

PATIENT
  Sex: Male

DRUGS (2)
  1. ATIVAN [Suspect]
     Active Substance: LORAZEPAM
     Indication: PRODUCT USED FOR UNKNOWN INDICATION
     Route: 065
  2. NUPLAZID [Suspect]
     Active Substance: PIMAVANSERIN TARTRATE
     Indication: PARKINSON^S DISEASE PSYCHOSIS
     Route: 048
     Dates: start: 20170803

REACTIONS (3)
  - Abdominal pain upper [Unknown]
  - Frequent bowel movements [Not Recovered/Not Resolved]
  - Diarrhoea [Not Recovered/Not Resolved]
